FAERS Safety Report 17265233 (Version 1)
Quarter: 2020Q1

REPORT INFORMATION
  Report Type: Spontaneous
  Country: US (occurrence: US)
  Receive Date: 20200114
  Receipt Date: 20200114
  Transmission Date: 20200409
  Serious: Yes (Other)
  Sender: FDA-Public Use
  Company Number: US-SCIEGEN PHARMACEUTICALS INC-2020SCISPO00003

PATIENT

DRUGS (1)
  1. PREGABALIN CAPSULES [Suspect]
     Active Substance: PREGABALIN

REACTIONS (4)
  - Condition aggravated [Unknown]
  - Product substitution issue [None]
  - Loss of personal independence in daily activities [Unknown]
  - Drug ineffective [None]
